FAERS Safety Report 4970913-0 (Version None)
Quarter: 2006Q2

REPORT INFORMATION
  Report Type: 
  Country: None (occurrence: None)
  Receive Date: 20060411
  Receipt Date: 20060411
  Transmission Date: 20061013
  Serious: Yes (Hospitalization)
  Sender: FDA-Public Use
  Company Number: None

PATIENT
  Age: 20 Year
  Sex: Female

DRUGS (2)
  1. HURRICAINE SPRAY   20% BENZOCAINE   BEUTLICH [Suspect]
     Indication: PREMEDICATION
  2. HURRICAINE SPRAY   20% BENZOCAINE   BEUTLICH [Suspect]
     Indication: SURGERY

REACTIONS (4)
  - BLOOD METHAEMOGLOBIN PRESENT [None]
  - HYPOTENSION [None]
  - POST PROCEDURAL COMPLICATION [None]
  - PULMONARY EMBOLISM [None]
